FAERS Safety Report 11037859 (Version 2)
Quarter: 2015Q2

REPORT INFORMATION
  Report Type: Spontaneous
  Country: US (occurrence: US)
  Receive Date: 20150416
  Receipt Date: 20150421
  Transmission Date: 20150821
  Serious: No
  Sender: FDA-Public Use
  Company Number: US-HORIZON-PEN-0046-2015

PATIENT
  Age: 68 Year
  Sex: Female

DRUGS (5)
  1. VITAMIN D [Concomitant]
     Active Substance: CHOLECALCIFEROL
  2. VITAMIN B12 [Concomitant]
     Active Substance: CYANOCOBALAMIN
  3. MULTIVITAMIN [Concomitant]
     Active Substance: VITAMINS
  4. ASA [Concomitant]
     Active Substance: ASPIRIN
  5. PENNSAID [Suspect]
     Active Substance: DICLOFENAC SODIUM
     Indication: BURSITIS
     Route: 061
     Dates: start: 20150411

REACTIONS (4)
  - Application site pain [Recovered/Resolved]
  - Product quality issue [Unknown]
  - Off label use [Unknown]
  - Application site pruritus [Recovering/Resolving]

NARRATIVE: CASE EVENT DATE: 20150411
